FAERS Safety Report 6142525-7 (Version None)
Quarter: 2009Q2

REPORT INFORMATION
  Report Type: 
  Country: None (occurrence: None)
  Receive Date: 20090403
  Receipt Date: 20090303
  Transmission Date: 20091009
  Serious: No
  Sender: FDA-Public Use
  Company Number: US-BAYER-200915417NA

PATIENT
  Age: 50 Year
  Sex: Female

DRUGS (2)
  1. AVELOX [Suspect]
     Indication: PNEUMONIA
     Dosage: TOTAL DAILY DOSE: 400 MG  UNIT DOSE: 400 MG
     Route: 048
     Dates: start: 20090114, end: 20090121
  2. PREDNISONE [Suspect]
     Indication: PNEUMONIA
     Dosage: AS USED: 20 MG
     Dates: start: 20090114, end: 20090206

REACTIONS (1)
  - AGEUSIA [None]
